FAERS Safety Report 25331075 (Version 1)
Quarter: 2025Q2

REPORT INFORMATION
  Report Type: Spontaneous
  Country: US (occurrence: None)
  Receive Date: 20250517
  Receipt Date: 20250517
  Transmission Date: 20250717
  Serious: Yes (Other)
  Sender: FDA-CTU
  Company Number: None

PATIENT
  Age: 64 Year
  Sex: Female
  Weight: 66.15 kg

DRUGS (3)
  1. ATORVASTATIN [Suspect]
     Active Substance: ATORVASTATIN
     Indication: Blood cholesterol
     Dosage: FREQUENCY : AT BEDTIME;?
     Route: 048
     Dates: start: 20250301, end: 20250516
  2. ALIVE 50 PLUS MULTIVITAMIN [Concomitant]
  3. PREMIER PROTEIN [Concomitant]

REACTIONS (12)
  - Muscle spasms [None]
  - Arthralgia [None]
  - Hypoaesthesia [None]
  - Nausea [None]
  - Cardiac flutter [None]
  - Constipation [None]
  - Diarrhoea [None]
  - Flatulence [None]
  - Fatigue [None]
  - Formication [None]
  - Oropharyngeal pain [None]
  - Cough [None]

NARRATIVE: CASE EVENT DATE: 20250301
